FAERS Safety Report 16130952 (Version 2)
Quarter: 2019Q2

REPORT INFORMATION
  Report Type: Spontaneous
  Country: US (occurrence: US)
  Receive Date: 20190328
  Receipt Date: 20190527
  Transmission Date: 20190711
  Serious: No
  Sender: FDA-Public Use
  Company Number: US-BRISTOL-MYERS SQUIBB COMPANY-BMS-2019-027782

PATIENT
  Sex: Female

DRUGS (3)
  1. ELIQUIS [Suspect]
     Active Substance: APIXABAN
     Indication: PULMONARY EMBOLISM
     Dosage: 5 MILLIGRAM, BID
     Route: 048
  2. ELIQUIS [Suspect]
     Active Substance: APIXABAN
     Indication: DEEP VEIN THROMBOSIS
     Route: 065
  3. OMEGA 3 FISH OILS [Concomitant]
     Active Substance: OMEGA-3 FATTY ACIDS
     Indication: PRODUCT USED FOR UNKNOWN INDICATION
     Dosage: UNK
     Route: 065

REACTIONS (9)
  - Stress [Unknown]
  - Dyspnoea [Unknown]
  - Skin laceration [Unknown]
  - Muscle spasms [Unknown]
  - Underdose [Unknown]
  - Wound haemorrhage [Unknown]
  - Arthralgia [Unknown]
  - Anxiety [Unknown]
  - Gingival bleeding [Unknown]
